FAERS Safety Report 7941660-8 (Version None)
Quarter: 2011Q4

REPORT INFORMATION
  Report Type: 
  Country: None (occurrence: None)
  Receive Date: 20111128
  Receipt Date: 20111128
  Transmission Date: 20120403
  Serious: Yes (Other)
  Sender: FDA-Public Use
  Company Number: None

PATIENT
  Age: 14 Year
  Sex: Male
  Weight: 40.823 kg

DRUGS (2)
  1. INTUNIV [Suspect]
     Indication: TOURETTE'S DISORDER
     Dosage: 1MG
     Route: 048
     Dates: start: 20111121, end: 20111123
  2. INTUNIV [Suspect]
     Indication: ATTENTION DEFICIT/HYPERACTIVITY DISORDER
     Dosage: 1MG
     Route: 048
     Dates: start: 20111121, end: 20111123

REACTIONS (8)
  - LETHARGY [None]
  - INCOHERENT [None]
  - SWELLING FACE [None]
  - PALLOR [None]
  - SOMNOLENCE [None]
  - DRUG HYPERSENSITIVITY [None]
  - EYE SWELLING [None]
  - RASH ERYTHEMATOUS [None]
